FAERS Safety Report 21317380 (Version 3)
Quarter: 2023Q1

REPORT INFORMATION
  Report Type: Spontaneous
  Country: US (occurrence: US)
  Receive Date: 20220911
  Receipt Date: 20230330
  Transmission Date: 20230418
  Serious: No
  Sender: FDA-Public Use
  Company Number: US-SA-SAC20220824000892

PATIENT
  Age: 27 Year
  Sex: Female

DRUGS (1)
  1. DUPIXENT [Suspect]
     Active Substance: DUPILUMAB
     Indication: Dermatitis atopic
     Dosage: 300 MG, QOW
     Route: 058
     Dates: start: 202207

REACTIONS (4)
  - Migraine [Recovered/Resolved]
  - Pain in jaw [Unknown]
  - Visual impairment [Not Recovered/Not Resolved]
  - Night blindness [Unknown]

NARRATIVE: CASE EVENT DATE: 20220101
